FAERS Safety Report 5129927-2 (Version None)
Quarter: 2006Q4

REPORT INFORMATION
  Report Type: 
  Country: None (occurrence: None)
  Receive Date: 20061012
  Receipt Date: 20060925
  Transmission Date: 20070319
  Serious: Yes (Hospitalization, Other)
  Sender: FDA-Public Use
  Company Number: HQWYE554630MAY06

PATIENT
  Age: 76 Year
  Sex: Female

DRUGS (10)
  1. TEMSIROLIMUS (TEMSIROLIMUS, TABLET) [Suspect]
     Indication: BREAST CANCER
     Dosage: 30 MG FOR 5 DAYS EVERY TWO WEEKS ORAL
     Route: 048
     Dates: start: 20060215, end: 20060329
  2. TEMSIROLIMUS (TEMSIROLIMUS, TABLET) [Suspect]
  3. LETROZOLE/TEMSIROLIMUS (LETROZOLE/TEMSIROLIMUS, TABLET) [Suspect]
     Indication: BREAST CANCER
     Dosage: 2.5 MG 1X PER 1 DAY ORAL
     Route: 048
     Dates: start: 20060215, end: 20060329
  4. LETROZOLE/TEMSIROLIMUS (LETROZOLE/TEMSIROLIMUS, TABLET) [Suspect]
  5. GLUCOPHAGE [Concomitant]
  6. ANTIDIABETIC AGENT (ANTIDIABETIC AGENT) [Concomitant]
  7. BISOPROLOL FUMARATE [Concomitant]
  8. SIMVASTATIN [Concomitant]
  9. TRANDOLAPRIL [Concomitant]
  10. GLYBORAL FORTE (CALCIUM CARBONATE/PHENOBARBITAL/PHENYTOIN SODIUM/POTAS [Concomitant]

REACTIONS (6)
  - CARDIAC FAILURE [None]
  - CARDIOMEGALY [None]
  - CONDITION AGGRAVATED [None]
  - DIABETES MELLITUS [None]
  - NAUSEA [None]
  - VOMITING [None]
